FAERS Safety Report 9411046 (Version 1)
Quarter: 2013Q3

REPORT INFORMATION
  Report Type: Spontaneous
  Country: US (occurrence: US)
  Receive Date: 20130719
  Receipt Date: 20130719
  Transmission Date: 20140515
  Serious: Yes (Hospitalization)
  Sender: FDA-Public Use
  Company Number: US-TEVA-419944USA

PATIENT
  Age: 24 Year
  Sex: Male

DRUGS (1)
  1. PHENTERMINE [Suspect]
     Indication: WEIGHT DECREASED
     Dosage: 3 PILLS OVER THE LAST WEEK
     Route: 048

REACTIONS (1)
  - Pneumomediastinum [Recovering/Resolving]
